FAERS Safety Report 9919808 (Version 1)
Quarter: 2014Q1

REPORT INFORMATION
  Report Type: Spontaneous
  Country: US (occurrence: US)
  Receive Date: 20140224
  Receipt Date: 20140224
  Transmission Date: 20141002
  Serious: No
  Sender: FDA-Public Use
  Company Number: US-PFIZER INC-2014051043

PATIENT
  Age: 58 Year
  Sex: Female
  Weight: 54.42 kg

DRUGS (2)
  1. NEURONTIN [Suspect]
     Indication: SPINAL PAIN
     Dosage: 1500 MG, 3X/DAY
  2. SYNTHROID [Concomitant]
     Indication: HYPOTHYROIDISM
     Dosage: 200 UG, DAILY

REACTIONS (2)
  - Off label use [Unknown]
  - Somnolence [Unknown]
